FAERS Safety Report 19906646 (Version 3)
Quarter: 2021Q4

REPORT INFORMATION
  Report Type: Spontaneous
  Country: FR (occurrence: FR)
  Receive Date: 20211001
  Receipt Date: 20211019
  Transmission Date: 20220303
  Serious: Yes (Hospitalization)
  Sender: FDA-Public Use
  Company Number: FR-ROCHE-2908009

PATIENT
  Age: 67 Year
  Sex: Male
  Weight: 66 kg

DRUGS (9)
  1. DOXORUBICIN HYDROCHLORIDE [Suspect]
     Active Substance: DOXORUBICIN HYDROCHLORIDE
     Indication: Diffuse large B-cell lymphoma
     Dosage: 91 MG, FREQ:21 D (ON 26AUG2021, THE PATIENT RECEIVED THE MOST RECENT DOSE PRIOR TO SAE)
     Route: 042
     Dates: start: 20210826, end: 20210826
  2. VINCRISTINE SULFATE [Suspect]
     Active Substance: VINCRISTINE SULFATE
     Indication: Diffuse large B-cell lymphoma
     Dosage: 2 MG, FREQ:21 D (ON 26AUG2021, THE PATIENT RECEIVED THE MOST RECENT DOSE PRIOR TO SAE)
     Route: 042
     Dates: start: 20210826
  3. RITUXIMAB [Suspect]
     Active Substance: RITUXIMAB
     Indication: Diffuse large B-cell lymphoma
     Dosage: 680 MG, FREQ:21 D (ON 26AUG2021, THE PATIENT RECEIVED THE MOST RECENT DOSE PRIOR TO SAE)
     Route: 042
     Dates: start: 20210826
  4. CYCLOPHOSPHAMIDE [Suspect]
     Active Substance: CYCLOPHOSPHAMIDE
     Indication: Diffuse large B-cell lymphoma
     Dosage: 1362.5 MG, FREQ:21 D (ON 26AUG2021, THE PATIENT RECEIVED THE MOST RECENT DOSE PRIOR TO SAE)
     Route: 042
     Dates: start: 20210826, end: 20210826
  5. ALLOPURINOL [Concomitant]
     Active Substance: ALLOPURINOL
     Dosage: 300 MG
     Dates: start: 20210826
  6. FILGRASTIM [Concomitant]
     Active Substance: FILGRASTIM
     Dosage: 48 U
     Dates: start: 20210831
  7. LEUCOVORIN CALCIUM [Concomitant]
     Active Substance: LEUCOVORIN CALCIUM
     Dosage: 50 MG
     Dates: start: 20210826
  8. VALACYCLOVIR HYDROCHLORIDE [Concomitant]
     Active Substance: VALACYCLOVIR HYDROCHLORIDE
     Dosage: 1 G
     Dates: start: 20210826
  9. BACTRIM [Concomitant]
     Active Substance: SULFAMETHOXAZOLE\TRIMETHOPRIM
     Dosage: 400 MG/80 MG
     Dates: start: 20210826

REACTIONS (3)
  - Neutrophil count decreased [Recovering/Resolving]
  - Pyrexia [Recovering/Resolving]
  - Diarrhoea [Recovering/Resolving]

NARRATIVE: CASE EVENT DATE: 20210905
